FAERS Safety Report 6165929-5 (Version None)
Quarter: 2009Q2

REPORT INFORMATION
  Report Type: 
  Country: None (occurrence: None)
  Receive Date: 20090422
  Receipt Date: 20090410
  Transmission Date: 20091009
  Serious: Yes (Hospitalization)
  Sender: FDA-Public Use
  Company Number: 233816K09USA

PATIENT
  Age: 33 Year
  Sex: Male
  Weight: 70 kg

DRUGS (2)
  1. REBIF [Suspect]
     Indication: MULTIPLE SCLEROSIS
     Dosage: 44 MCG, 3 IN 1 WEEKS, SUBCUTANEOUS
     Route: 058
     Dates: start: 20070828
  2. KEPPRA [Concomitant]

REACTIONS (4)
  - BLADDER CATHETERISATION [None]
  - CATHETER RELATED COMPLICATION [None]
  - HEART RATE INCREASED [None]
  - PYREXIA [None]
